FAERS Safety Report 23697853 (Version 1)
Quarter: 2024Q2

REPORT INFORMATION
  Report Type: Spontaneous
  Country: US (occurrence: US)
  Receive Date: 20240402
  Receipt Date: 20240402
  Transmission Date: 20240715
  Serious: No
  Sender: FDA-Public Use
  Company Number: US-ARBOR PHARMACEUTICALS, LLC-US-2024ARB000070

PATIENT
  Sex: Female

DRUGS (1)
  1. EDARBI [Suspect]
     Active Substance: AZILSARTAN KAMEDOXOMIL
     Indication: Blood pressure management
     Dosage: UNK
     Route: 065

REACTIONS (2)
  - Dizziness [Not Recovered/Not Resolved]
  - Product dose omission issue [Unknown]
